FAERS Safety Report 6385621-1 (Version None)
Quarter: 2009Q4

REPORT INFORMATION
  Report Type: 
  Country: None (occurrence: None)
  Receive Date: 20091002
  Receipt Date: 20081021
  Transmission Date: 20100525
  Serious: No
  Sender: FDA-Public Use
  Company Number: US-ASTRAZENECA-2008UW23474

PATIENT
  Age: 56 Year
  Sex: Female

DRUGS (8)
  1. ARIMIDEX [Suspect]
     Route: 048
     Dates: start: 20060701
  2. DIOVAN [Concomitant]
  3. ALENDRONATE SODIUM [Concomitant]
  4. ASPIRIN [Concomitant]
  5. CALCIUM [Concomitant]
  6. VITAMIN D [Concomitant]
  7. CYMBALTA [Concomitant]
     Dates: start: 20071001, end: 20080701
  8. TRAMADOL HCL [Concomitant]
     Dates: start: 20060101, end: 20071001

REACTIONS (6)
  - BONE PAIN [None]
  - DIZZINESS [None]
  - FLUSHING [None]
  - MIDDLE EAR EFFUSION [None]
  - NAUSEA [None]
  - WITHDRAWAL SYNDROME [None]
